FAERS Safety Report 18407299 (Version 5)
Quarter: 2022Q3

REPORT INFORMATION
  Report Type: Spontaneous
  Country: CA (occurrence: CA)
  Receive Date: 20201020
  Receipt Date: 20220929
  Transmission Date: 20221027
  Serious: Yes (Other)
  Sender: FDA-Public Use
  Company Number: CA-PFIZER INC-2019410472

PATIENT
  Age: 63 Year
  Sex: Male

DRUGS (4)
  1. XELJANZ [Suspect]
     Active Substance: TOFACITINIB CITRATE
     Indication: Colitis ulcerative
     Dosage: 10 MG, 2X/DAY
     Route: 048
     Dates: start: 20190816, end: 201910
  2. XELJANZ [Suspect]
     Active Substance: TOFACITINIB CITRATE
     Dosage: 5 MG, 2X/DAY
     Route: 048
     Dates: start: 201910, end: 202102
  3. XELJANZ [Suspect]
     Active Substance: TOFACITINIB CITRATE
     Dosage: 10 MG, 2X/DAY
     Route: 048
     Dates: start: 202102
  4. CORTISONE [Concomitant]
     Active Substance: CORTISONE
     Indication: Colitis ulcerative
     Dosage: 1 DF, DOSAGE UNKNOWN
     Route: 065
     Dates: start: 20190814

REACTIONS (5)
  - Haemorrhoids [Recovered/Resolved]
  - Haemorrhoids [Not Recovered/Not Resolved]
  - Rash [Recovered/Resolved]
  - Acne [Recovered/Resolved]
  - Sleep disorder [Recovered/Resolved]

NARRATIVE: CASE EVENT DATE: 20200101
